FAERS Safety Report 9492076 (Version 1)
Quarter: 2013Q3

REPORT INFORMATION
  Report Type: Spontaneous
  Country: IT (occurrence: None)
  Receive Date: 20130827
  Receipt Date: 20130827
  Transmission Date: 20140515
  Serious: Yes (Hospitalization)
  Sender: FDA-Public Use
  Company Number: 2013AP007512

PATIENT
  Age: 73 Year
  Sex: Female

DRUGS (5)
  1. LEVOFLOXACIN (LEVOFLOXACIN) [Suspect]
     Indication: PRODUCT USED FOR UNKNOWN INDICATION
     Route: 048
     Dates: start: 20130801, end: 20130812
  2. KCL RETARD [Concomitant]
  3. FERROGRAD [Concomitant]
  4. ESOMEPRAZOLE MAGNESIUM (ESOMEPRAZOLE MAGNESIUM) [Concomitant]
  5. METFORMIN (METFORMIN) [Suspect]
     Indication: DIABETES MELLITUS
     Route: 048
     Dates: start: 20120101, end: 20130812

REACTIONS (2)
  - Hypoglycaemia [None]
  - Drug interaction [None]
